FAERS Safety Report 4630127-0 (Version None)
Quarter: 2005Q2

REPORT INFORMATION
  Report Type: 
  Country: None (occurrence: None)
  Receive Date: 20050408
  Receipt Date: 20050322
  Transmission Date: 20051028
  Serious: No
  Sender: FDA-Public Use
  Company Number: BE-GLAXOSMITHKLINE-B0376250A

PATIENT
  Age: 24 Year
  Sex: Male

DRUGS (1)
  1. ZINNAT [Suspect]
     Indication: SINUSITIS
     Dosage: 500MG THREE TIMES PER DAY

REACTIONS (4)
  - HYPERVENTILATION [None]
  - PARAESTHESIA [None]
  - PARAESTHESIA ORAL [None]
  - SENSE OF OPPRESSION [None]
